FAERS Safety Report 10355360 (Version 1)
Quarter: 2014Q3

REPORT INFORMATION
  Report Type: Spontaneous
  Country: BR (occurrence: BR)
  Receive Date: 20140731
  Receipt Date: 20140731
  Transmission Date: 20150326
  Serious: Yes (Death, Other)
  Sender: FDA-Public Use
  Company Number: BR-PFIZER INC-2014212406

PATIENT
  Sex: Female

DRUGS (2)
  1. CITALOR [Suspect]
     Active Substance: ATORVASTATIN
     Dosage: 10 MG STRENGTH
     Route: 048
  2. DETRUSITOL LA [Suspect]
     Active Substance: TOLTERODINE TARTRATE
     Dosage: 4 MG MODIFIED RELEASE CAPSULE
     Route: 048

REACTIONS (2)
  - Shock haemorrhagic [Fatal]
  - Renal disorder [Fatal]
